FAERS Safety Report 14063022 (Version 1)
Quarter: 2017Q4

REPORT INFORMATION
  Report Type: Spontaneous
  Country: GB (occurrence: GB)
  Receive Date: 20171009
  Receipt Date: 20171009
  Transmission Date: 20180321
  Serious: Yes (Other)
  Sender: FDA-Public Use
  Company Number: GB-APOTEX-2017AP019351

PATIENT
  Age: 15 Year
  Sex: Male

DRUGS (5)
  1. RISPERIDONE 0.5 [Suspect]
     Active Substance: RISPERIDONE
     Indication: ILLUSION
     Dosage: 0.5 MG, PER DAY
     Route: 065
  2. LORAZEPAM. [Concomitant]
     Active Substance: LORAZEPAM
     Indication: ILLUSION
     Dosage: 1 MG, TID
     Route: 065
  3. SERTRALINE [Suspect]
     Active Substance: SERTRALINE HYDROCHLORIDE
     Indication: ILLUSION
     Dosage: 25 MG, QD
     Route: 065
  4. SERTRALINE [Suspect]
     Active Substance: SERTRALINE HYDROCHLORIDE
     Dosage: 50 MG, UNK
     Route: 065
  5. RISPERIDONE 0.5 [Suspect]
     Active Substance: RISPERIDONE
     Dosage: 4 MG, UNK
     Route: 065

REACTIONS (7)
  - Condition aggravated [Unknown]
  - Akathisia [Unknown]
  - Illusion [Unknown]
  - Agitation [Unknown]
  - Epistaxis [Unknown]
  - Fatigue [Unknown]
  - Drug ineffective [Unknown]
